FAERS Safety Report 11966667 (Version 1)
Quarter: 2016Q1

REPORT INFORMATION
  Report Type: Spontaneous
  Country: US (occurrence: US)
  Receive Date: 20160127
  Receipt Date: 20160127
  Transmission Date: 20160526
  Serious: No
  Sender: FDA-Public Use
  Company Number: US-009507513-1601USA009372

PATIENT
  Age: 33 Year
  Sex: Female
  Weight: 70.75 kg

DRUGS (1)
  1. IMPLANON [Suspect]
     Active Substance: ETONOGESTREL
     Indication: CONTRACEPTION
     Dosage: UNK
     Route: 058
     Dates: start: 20090210

REACTIONS (5)
  - Menstruation normal [Unknown]
  - Incorrect drug administration duration [Unknown]
  - Menstruation delayed [Recovered/Resolved]
  - Complication associated with device [Unknown]
  - Complication associated with device [Unknown]

NARRATIVE: CASE EVENT DATE: 20151102
